FAERS Safety Report 25213543 (Version 2)
Quarter: 2025Q2

REPORT INFORMATION
  Report Type: Spontaneous
  Country: US (occurrence: US)
  Receive Date: 20250418
  Receipt Date: 20250509
  Transmission Date: 20250716
  Serious: Yes (Death, Hospitalization, Other)
  Sender: ALEXION PHARMACEUTICALS
  Company Number: US-AstraZeneca-CH-00849600A

PATIENT
  Weight: 134.3 kg

DRUGS (25)
  1. SOLIRIS [Suspect]
     Active Substance: ECULIZUMAB
     Indication: Atypical haemolytic uraemic syndrome
  2. SOLIRIS [Suspect]
     Active Substance: ECULIZUMAB
  3. Potassium monophosphate [Concomitant]
     Dosage: 2 DOSAGE FORM, Q8H
     Route: 065
  4. Sodium monophosphate [Concomitant]
     Dosage: 2 DOSAGE FORM, Q8H
     Route: 065
  5. VORICONAZOLE [Concomitant]
     Active Substance: VORICONAZOLE
     Dosage: 170 MG IN 0.9% NACL 100 ML IVPB, 2 MG/KG (ORDER-SPECIFIC)
     Route: 065
  6. TRANEXAMIC ACID [Concomitant]
     Active Substance: TRANEXAMIC ACID
     Dosage: 500 MILLIGRAM, TID
     Route: 065
  7. MEROPENEM [Concomitant]
     Active Substance: MEROPENEM
     Dosage: 1 GRAM, Q8H
     Route: 065
  8. RIFAXIMIN [Concomitant]
     Active Substance: RIFAXIMIN
     Dosage: 550 MILLIGRAM, BID
     Route: 065
  9. CHLORHEXIDINE GLUCONATE [Concomitant]
     Active Substance: CHLORHEXIDINE GLUCONATE
     Dosage: 15 MILLILITER, BID
     Route: 065
  10. INSULIN LISPRO [Concomitant]
     Active Substance: INSULIN LISPRO
     Dosage: 4 INTERNATIONAL UNIT, Q6H
     Route: 065
  11. INSULIN LISPRO [Concomitant]
     Active Substance: INSULIN LISPRO
     Dosage: 0-10 UNITS
     Route: 065
  12. SODIUM CHLORIDE [Concomitant]
     Active Substance: SODIUM CHLORIDE
     Route: 065
  13. ACYCLOVIR [Concomitant]
     Active Substance: ACYCLOVIR
     Dosage: 400 MILLIGRAM, Q8H
     Route: 065
  14. VANCOMYCIN [Concomitant]
     Active Substance: VANCOMYCIN
     Dosage: 1500 MILLIGRAM, QD
  15. INSULIN GLARGINE [Concomitant]
     Active Substance: INSULIN GLARGINE
     Dosage: 18 INTERNATIONAL UNIT, EVERY MORNING
     Route: 065
  16. LACTULOSE [Concomitant]
     Active Substance: LACTULOSE
     Dosage: 45 MILLILITER, Q4H
     Route: 065
  17. FOLIC ACID [Concomitant]
     Active Substance: FOLIC ACID
     Dosage: 1 MILLIGRAM, QD
     Route: 065
  18. PANTOPRAZOLE [Concomitant]
     Active Substance: PANTOPRAZOLE
     Dosage: 40 MILLIGRAM, BID
     Route: 065
  19. AMIODARONE [Concomitant]
     Active Substance: AMIODARONE
     Route: 065
  20. PHENYLEPHRINE [Concomitant]
     Active Substance: PHENYLEPHRINE
     Route: 065
  21. EPINEPHRINE [Concomitant]
     Active Substance: EPINEPHRINE
     Route: 065
  22. NOREPINEPHRINE [Concomitant]
     Active Substance: NOREPINEPHRINE
     Route: 065
  23. VASOPRESSIN [Concomitant]
     Active Substance: VASOPRESSIN
     Route: 065
  24. FENTANYL CITRATE [Concomitant]
     Active Substance: FENTANYL CITRATE
     Route: 065
  25. DEXMEDETOMIDINE [Concomitant]
     Active Substance: DEXMEDETOMIDINE
     Route: 065

REACTIONS (6)
  - Septic shock [Fatal]
  - Metabolic encephalopathy [Unknown]
  - Renal failure [Unknown]
  - Anaemia [Unknown]
  - Thrombocytopenia [Unknown]
  - Pneumonia [Unknown]
